FAERS Safety Report 9562188 (Version 1)
Quarter: 2013Q3

REPORT INFORMATION
  Report Type: Spontaneous
  Country: BR (occurrence: BR)
  Receive Date: 20130927
  Receipt Date: 20130927
  Transmission Date: 20140515
  Serious: Yes (Hospitalization, Other)
  Sender: FDA-Public Use
  Company Number: BR-ASTRAZENECA-2013SE71101

PATIENT
  Age: 92 Year
  Sex: Female
  Weight: 65 kg

DRUGS (6)
  1. NEXIUM [Suspect]
     Route: 048
  2. CRESTOR [Suspect]
     Route: 048
  3. MONOCORDIL [Concomitant]
  4. CARDIZEM [Concomitant]
  5. ZETIA [Concomitant]
  6. DIOVAN [Concomitant]

REACTIONS (2)
  - Coronary artery occlusion [Recovered/Resolved]
  - Myocardial infarction [Unknown]
